FAERS Safety Report 20684628 (Version 1)
Quarter: 2022Q2

REPORT INFORMATION
  Report Type: Spontaneous
  Country: HR (occurrence: HR)
  Receive Date: 20220407
  Receipt Date: 20220407
  Transmission Date: 20220720
  Serious: Yes (Hospitalization)
  Sender: FDA-Public Use
  Company Number: HR-002147023-NVSC2022HR063389

PATIENT
  Age: 67 Year
  Sex: Female

DRUGS (10)
  1. ATORVASTATIN CALCIUM [Suspect]
     Active Substance: ATORVASTATIN CALCIUM
     Indication: Hypercholesterolaemia
     Dosage: 1 DOSAGE FORM, QD (40 MG)
  2. ATORVASTATIN CALCIUM [Suspect]
     Active Substance: ATORVASTATIN CALCIUM
     Dosage: 1 DOSAGE FORM, QD (10 MG)
  3. ROSUVASTATIN [Concomitant]
     Active Substance: ROSUVASTATIN
     Indication: Hypercholesterolaemia
     Dosage: 1 DOSAGE FORM, QD
     Route: 065
  4. TRANDOLAPRIL [Concomitant]
     Active Substance: TRANDOLAPRIL
     Dosage: UNK
     Route: 065
  5. FOLIC ACID [Concomitant]
     Active Substance: FOLIC ACID
     Dosage: 1 DOSAGE FORM, QD
     Route: 065
  6. PREDNISONE [Concomitant]
     Active Substance: PREDNISONE
     Dosage: UNK
     Route: 065
  7. CALCITRIOL [Concomitant]
     Active Substance: CALCITRIOL
     Dosage: 1 DOSAGE FORM, QD
     Route: 065
  8. PANTOPRAZOLE [Concomitant]
     Active Substance: PANTOPRAZOLE
     Dosage: 1 DOSAGE FORM, QD
     Route: 065
  9. FUROSEMIDE [Concomitant]
     Active Substance: FUROSEMIDE
     Dosage: UNK
     Route: 065
  10. FUROSEMIDE [Concomitant]
     Active Substance: FUROSEMIDE
     Dosage: 2 DOSAGE FORM, QD
     Route: 065

REACTIONS (12)
  - Nephrotic syndrome [Unknown]
  - Glomerular filtration rate decreased [Unknown]
  - Acute kidney injury [Unknown]
  - Sjogren^s syndrome [Unknown]
  - Blood creatinine increased [Unknown]
  - Blood urea increased [Unknown]
  - Swelling of eyelid [Unknown]
  - Swelling face [Unknown]
  - Chromaturia [Unknown]
  - Oropharyngeal pain [Unknown]
  - Sinusitis [Unknown]
  - Joint swelling [Unknown]
